FAERS Safety Report 20615370 (Version 3)
Quarter: 2022Q2

REPORT INFORMATION
  Report Type: Spontaneous
  Country: US (occurrence: US)
  Receive Date: 20220321
  Receipt Date: 20220502
  Transmission Date: 20220720
  Serious: Yes (Other)
  Sender: FDA-Public Use
  Company Number: US-CELLTRION INC.-2022US003092

PATIENT

DRUGS (2)
  1. TRUXIMA [Suspect]
     Active Substance: RITUXIMAB-ABBS
     Indication: Myopathy
     Dosage: 1000MG FREQUENCY DAY 1 AND DAY 15
     Dates: start: 20220309
  2. TRUXIMA [Suspect]
     Active Substance: RITUXIMAB-ABBS
     Indication: Systemic lupus erythematosus

REACTIONS (3)
  - Systemic lupus erythematosus [Unknown]
  - Myopathy [Unknown]
  - Off label use [Unknown]
